FAERS Safety Report 14827626 (Version 1)
Quarter: 2018Q2

REPORT INFORMATION
  Report Type: Spontaneous
  Country: US (occurrence: US)
  Receive Date: 20180430
  Receipt Date: 20180430
  Transmission Date: 20180711
  Serious: No
  Sender: FDA-Public Use
  Company Number: US-ABBVIE-13P-163-1131408-00

PATIENT
  Age: 54 Year
  Sex: Male
  Weight: 77.18 kg

DRUGS (17)
  1. ANDROGEL [Suspect]
     Active Substance: TESTOSTERONE
     Dosage: 6 PUMPS
     Route: 061
     Dates: end: 2017
  2. ANDROGEL [Suspect]
     Active Substance: TESTOSTERONE
     Route: 061
     Dates: start: 201709
  3. SELENIUM [Concomitant]
     Active Substance: SELENIUM
     Indication: SUPPLEMENTATION THERAPY
  4. LUTEIN WITH BILBERRY [Concomitant]
     Indication: SUPPLEMENTATION THERAPY
  5. ANDROGEL [Suspect]
     Active Substance: TESTOSTERONE
     Dosage: 2 PUMPS
     Route: 061
     Dates: start: 2014
  6. ANDROGEL [Suspect]
     Active Substance: TESTOSTERONE
     Route: 061
     Dates: start: 201206, end: 201209
  7. ANDROGEL [Suspect]
     Active Substance: TESTOSTERONE
     Route: 061
     Dates: start: 2013
  8. BETA CAROTENE [Concomitant]
     Indication: SUPPLEMENTATION THERAPY
  9. GLUCOSAMINE [Concomitant]
     Active Substance: GLUCOSAMINE
     Indication: SUPPLEMENTATION THERAPY
  10. LOSARTIN [Concomitant]
     Active Substance: LOSARTAN
     Indication: HYPERTENSION
  11. CONDROITIN [Concomitant]
     Indication: SUPPLEMENTATION THERAPY
  12. ANDROGEL [Suspect]
     Active Substance: TESTOSTERONE
     Indication: BLOOD TESTOSTERONE DECREASED
     Route: 061
     Dates: start: 201209
  13. ANDROGEL [Suspect]
     Active Substance: TESTOSTERONE
     Dosage: 4 PUMPS
     Route: 061
  14. VITAMIN D [Concomitant]
     Active Substance: CHOLECALCIFEROL
     Indication: SUPPLEMENTATION THERAPY
  15. KELP [Concomitant]
     Active Substance: KELP
     Indication: SUPPLEMENTATION THERAPY
  16. ZINC. [Concomitant]
     Active Substance: ZINC
     Indication: SUPPLEMENTATION THERAPY
  17. VITAMIN B COMPLEX [Concomitant]
     Active Substance: CYANOCOBALAMIN\DEXPANTHENOL\NIACINAMIDE\PYRIDOXINE HYDROCHLORIDE\RIBOFLAVIN 5^-PHOSPHATE SODIUM\THIAMINE HYDROCHLORIDE\VITAMIN B COMPLEX
     Indication: SUPPLEMENTATION THERAPY

REACTIONS (8)
  - Blood testosterone decreased [Not Recovered/Not Resolved]
  - Application site dryness [Not Recovered/Not Resolved]
  - Malabsorption from application site [Not Recovered/Not Resolved]
  - Drug administration error [Recovered/Resolved]
  - Drug ineffective [Not Recovered/Not Resolved]
  - Eczema [Unknown]
  - Blood testosterone decreased [Not Recovered/Not Resolved]
  - Blood testosterone abnormal [Recovered/Resolved]

NARRATIVE: CASE EVENT DATE: 2013
